FAERS Safety Report 18449910 (Version 1)
Quarter: 2020Q4

REPORT INFORMATION
  Report Type: Spontaneous
  Country: NL (occurrence: NL)
  Receive Date: 20201102
  Receipt Date: 20201102
  Transmission Date: 20210114
  Serious: Yes (Other)
  Sender: FDA-Public Use
  Company Number: NL-ACCORD-206914

PATIENT
  Age: 20 Year
  Sex: Male
  Weight: 70 kg

DRUGS (2)
  1. FLUOXETINE [Suspect]
     Active Substance: FLUOXETINE HYDROCHLORIDE
     Indication: PRODUCT USED FOR UNKNOWN INDICATION
     Dosage: 20 MG, STRENGTH: 20 MG, BRAND NAME NOT SPECIFIED
  2. DOMPERIDONE [Interacting]
     Active Substance: DOMPERIDONE
     Indication: NAUSEA
     Dosage: 2DD 10 MG, STRENGTH: 10 MG, BRAND NAME NOT SPECIFIED
     Dates: start: 20200928, end: 20200929

REACTIONS (3)
  - Drug interaction [Unknown]
  - Tachycardia [Recovering/Resolving]
  - Shock symptom [Recovering/Resolving]

NARRATIVE: CASE EVENT DATE: 20200928
